FAERS Safety Report 11047229 (Version 1)
Quarter: 2015Q2

REPORT INFORMATION
  Report Type: Spontaneous
  Country: GB (occurrence: GB)
  Receive Date: 20150420
  Receipt Date: 20150420
  Transmission Date: 20150821
  Serious: Yes (Life-Threatening, Hospitalization, Disabling)
  Sender: FDA-Public Use
  Company Number: GB-BRISTOL-MYERS SQUIBB COMPANY-BMS-2015-023873

PATIENT
  Age: 37 Year
  Sex: Male
  Weight: 78 kg

DRUGS (1)
  1. ARIPIPRAZOLE. [Suspect]
     Active Substance: ARIPIPRAZOLE
     Indication: SCHIZOPHRENIA, PARANOID TYPE
     Dosage: UNK
     Route: 048
     Dates: start: 20060704, end: 20061122

REACTIONS (4)
  - Subarachnoid haemorrhage [Not Recovered/Not Resolved]
  - Dehydration [Not Recovered/Not Resolved]
  - Acute kidney injury [Not Recovered/Not Resolved]
  - Thyroid disorder [Not Recovered/Not Resolved]

NARRATIVE: CASE EVENT DATE: 20060704
